FAERS Safety Report 18756292 (Version 3)
Quarter: 2021Q1

REPORT INFORMATION
  Report Type: Report from Study
  Country: AR (occurrence: AR)
  Receive Date: 20210119
  Receipt Date: 20210306
  Transmission Date: 20210419
  Serious: Yes (Other)
  Sender: FDA-Public Use
  Company Number: NVSC2021AR007854

PATIENT
  Age: 78 Year
  Sex: Female

DRUGS (4)
  1. ENTRESTO [Suspect]
     Active Substance: SACUBITRIL\VALSARTAN
     Indication: ARRHYTHMIA
     Dosage: 1 QUARTER IN THE MORNING AND HALF AT NIGHT SINCE 2 YEARS AGO, LESS THAN A MONTH AGO STOPPED
     Route: 065
  2. ENTRESTO [Suspect]
     Active Substance: SACUBITRIL\VALSARTAN
     Dosage: 1 QUARTER IN THE MORNING AND HALF AT NIGHT
     Route: 065
  3. ENTRESTO [Suspect]
     Active Substance: SACUBITRIL\VALSARTAN
     Indication: CARDIAC FAILURE
     Dosage: 0.5 MG, BID (HALF IN THE MORNING AND HALF AT NIGHT, LESS THAN A MONTH AGO, LAST FRIDAY STOPPED)
     Route: 065
  4. ENTRESTO [Suspect]
     Active Substance: SACUBITRIL\VALSARTAN
     Dosage: 0.5 DF (50 MG), BID (HALF IN THE MORNING AND HALF IN THE NIGHT)
     Route: 065
     Dates: start: 2020

REACTIONS (10)
  - Arrhythmia [Not Recovered/Not Resolved]
  - Fear [Unknown]
  - Malaise [Unknown]
  - Anxiety [Unknown]
  - Blood pressure abnormal [Unknown]
  - Product prescribing error [Unknown]
  - Drug ineffective for unapproved indication [Unknown]
  - Wrong technique in product usage process [Unknown]
  - Fatigue [Unknown]
  - Prescribed underdose [Unknown]

NARRATIVE: CASE EVENT DATE: 202012
